FAERS Safety Report 20217997 (Version 2)
Quarter: 2022Q1

REPORT INFORMATION
  Report Type: Report from Study
  Country: US (occurrence: US)
  Receive Date: 20211222
  Receipt Date: 20220111
  Transmission Date: 20220424
  Serious: Yes (Hospitalization)
  Sender: FDA-Public Use
  Company Number: US-BAYER-2021A272529

PATIENT
  Age: 5 Month
  Sex: Male
  Weight: 4.082 kg

DRUGS (5)
  1. ADEMPAS [Suspect]
     Active Substance: RIOCIGUAT
     Indication: Pulmonary arterial hypertension
     Dosage: 0.5 MG, TID
     Route: 048
     Dates: start: 20211203
  2. TRACLEER [Concomitant]
     Active Substance: BOSENTAN
  3. TRACLEER [Concomitant]
     Active Substance: BOSENTAN
  4. REMODULIN [Concomitant]
     Active Substance: TREPROSTINIL
  5. SILDENAFIL CITRATE [Concomitant]
     Active Substance: SILDENAFIL CITRATE

REACTIONS (3)
  - Enteral nutrition [None]
  - Pulmonary arterial hypertension [None]
  - Off label use [None]
